FAERS Safety Report 6559306-2 (Version None)
Quarter: 2010Q1

REPORT INFORMATION
  Report Type: 
  Country: None (occurrence: None)
  Receive Date: 20100129
  Receipt Date: 20091029
  Transmission Date: 20100710
  Serious: No
  Sender: FDA-Public Use
  Company Number: US-ABBOTT-09P-163-0585739-00

PATIENT
  Sex: Female

DRUGS (2)
  1. HUMIRA [Suspect]
     Indication: PSORIATIC ARTHROPATHY
     Dates: start: 20090528
  2. HUMIRA [Suspect]
     Indication: PSORIASIS
     Dates: end: 20090201

REACTIONS (3)
  - ARTHRALGIA [None]
  - JOINT SWELLING [None]
  - RASH [None]
